FAERS Safety Report 5323910-X (Version None)
Quarter: 2007Q2

REPORT INFORMATION
  Report Type: 
  Country: None (occurrence: None)
  Receive Date: 20070514
  Receipt Date: 20070507
  Transmission Date: 20071010
  Serious: Yes (Hospitalization)
  Sender: FDA-Public Use
  Company Number: US-SANOFI-SYNTHELABO-F01200700601

PATIENT
  Sex: Female
  Weight: 64.5 kg

DRUGS (8)
  1. PERCOCET [Concomitant]
  2. ENALAPRIL [Concomitant]
  3. COMPAZINE [Concomitant]
  4. CA/MG OR PLACEBO [Suspect]
     Route: 042
     Dates: start: 20070420, end: 20070420
  5. BEVACIZUMAB [Suspect]
     Route: 042
     Dates: start: 20070420, end: 20070420
  6. LEUCOVORIN CALCIUM [Suspect]
     Route: 042
     Dates: start: 20070420, end: 20070420
  7. FLUOROURACIL [Suspect]
     Dosage: 4080 MG/M2
     Route: 042
     Dates: start: 20070420, end: 20070421
  8. OXALIPLATIN [Suspect]
     Indication: COLORECTAL CANCER METASTATIC
     Dosage: 144 MG/M2
     Route: 042
     Dates: start: 20070420, end: 20070420

REACTIONS (2)
  - CONSTIPATION [None]
  - URINARY RETENTION [None]
